FAERS Safety Report 9133513 (Version 1)
Quarter: 2013Q1

REPORT INFORMATION
  Report Type: Spontaneous
  Country: US (occurrence: US)
  Receive Date: 20130124
  Receipt Date: 20130124
  Transmission Date: 20140127
  Serious: Yes (Hospitalization)
  Sender: FDA-Public Use
  Company Number: US-BRACCO-008251

PATIENT
  Age: 25 Year
  Sex: Female
  Weight: 59 kg

DRUGS (14)
  1. ALPRAZOLAM [Concomitant]
     Dosage: AS NEEDED
  2. NEXIUM [Concomitant]
  3. SINGULAIR [Concomitant]
  4. DILTIAZEM ER [Concomitant]
  5. CYMBALTA [Concomitant]
  6. DIGOXIN [Concomitant]
  7. METOPROLOL [Concomitant]
     Dosage: 2.5 TABS IN THE MORNING, ONE AT LUNCH WHEN NEEDED AND ONE AT 5:00 PM
  8. XANAX [Concomitant]
  9. ZOFRAN [Concomitant]
  10. LAMICTAL [Concomitant]
  11. PROAMATINE [Concomitant]
  12. MULTIHANCE [Suspect]
     Indication: PELVIC PAIN
     Route: 042
     Dates: start: 20120503, end: 20120503
  13. MULTIHANCE [Suspect]
     Indication: BACK PAIN
     Route: 042
     Dates: start: 20120503, end: 20120503
  14. MULTIHANCE [Suspect]
     Indication: NUCLEAR MAGNETIC RESONANCE IMAGING
     Route: 042
     Dates: start: 20120503, end: 20120503

REACTIONS (1)
  - Hypersensitivity [Recovered/Resolved]
